FAERS Safety Report 10203891 (Version 1)
Quarter: 2014Q2

REPORT INFORMATION
  Report Type: Spontaneous
  Country: US (occurrence: US)
  Receive Date: 20140529
  Receipt Date: 20140529
  Transmission Date: 20141212
  Serious: No
  Sender: FDA-Public Use
  Company Number: US-BAYER-2014-076929

PATIENT
  Age: 51 Year
  Sex: Male

DRUGS (1)
  1. FINACEA [Suspect]
     Dosage: UNK
     Dates: start: 20140301

REACTIONS (1)
  - Drug ineffective [None]
